FAERS Safety Report 5787359-8 (Version None)
Quarter: 2008Q2

REPORT INFORMATION
  Report Type: 
  Country: None (occurrence: None)
  Receive Date: 20080623
  Receipt Date: 20080623
  Transmission Date: 20081010
  Serious: Yes (Hospitalization)
  Sender: FDA-Public Use
  Company Number: None

PATIENT
  Age: 57 Year
  Sex: Male
  Weight: 83.9 kg

DRUGS (8)
  1. VANCOMYCIN [Suspect]
     Indication: POSTOPERATIVE WOUND INFECTION
     Dosage: 1.25 GM Q12H IV BOLUS
     Route: 040
     Dates: start: 20071115, end: 20071119
  2. ZOSYN [Suspect]
     Indication: POSTOPERATIVE WOUND INFECTION
     Dosage: 3.375 GM Q6H IV BOLUS
     Route: 040
     Dates: start: 20071115, end: 20071119
  3. CEFEPIME [Concomitant]
  4. DAPTOMYCIN [Concomitant]
  5. FLUCONAZOLE [Concomitant]
  6. IMATINIB MESYLATE [Concomitant]
  7. KETOROLAC TROMETHAMINE [Concomitant]
  8. TIGECYCLINE [Concomitant]

REACTIONS (1)
  - NEPHROPATHY TOXIC [None]
